FAERS Safety Report 18993370 (Version 1)
Quarter: 2021Q1

REPORT INFORMATION
  Report Type: Spontaneous
  Country: US (occurrence: US)
  Receive Date: 20210310
  Receipt Date: 20210310
  Transmission Date: 20210420
  Serious: No
  Sender: FDA-Public Use
  Company Number: US-PFIZER INC-2021200995

PATIENT
  Age: 54 Year
  Sex: Female

DRUGS (1)
  1. GENOTROPIN [Suspect]
     Active Substance: SOMATROPIN
     Dosage: 1.2 MG, DAILY (1.2MG X 7 DAYS A WEEK)
     Dates: start: 20210122

REACTIONS (1)
  - Bladder pain [Not Recovered/Not Resolved]

NARRATIVE: CASE EVENT DATE: 2021
